FAERS Safety Report 18386832 (Version 3)
Quarter: 2020Q4

REPORT INFORMATION
  Report Type: Spontaneous
  Country: US (occurrence: US)
  Receive Date: 20201015
  Receipt Date: 20201228
  Transmission Date: 20210114
  Serious: Yes (Other)
  Sender: FDA-Public Use
  Company Number: US-BRISTOL-MYERS SQUIBB COMPANY-BMS-2020-085507

PATIENT
  Age: 31 Year
  Sex: Male
  Weight: 81.6 kg

DRUGS (9)
  1. WARFARIN SODIUM. [Suspect]
     Active Substance: WARFARIN SODIUM
     Indication: PRODUCT USED FOR UNKNOWN INDICATION
     Dosage: UNK
     Route: 065
  2. TREPROSTINIL. [Suspect]
     Active Substance: TREPROSTINIL
     Dosage: 0.375 MILLIGRAM, TID
     Route: 048
     Dates: start: 20201120
  3. ADEMPAS [Suspect]
     Active Substance: RIOCIGUAT
     Indication: PRODUCT USED FOR UNKNOWN INDICATION
     Dosage: UNK
     Route: 065
  4. ORENITRAM [Suspect]
     Active Substance: TREPROSTINIL
     Dosage: UNK
     Route: 048
  5. TREPROSTINIL. [Suspect]
     Active Substance: TREPROSTINIL
     Indication: PULMONARY ARTERIAL HYPERTENSION
     Dosage: EXTENDED RELEASE TABLET
     Route: 048
     Dates: start: 20200722
  6. ORENITRAM [Suspect]
     Active Substance: TREPROSTINIL
     Indication: PULMONARY ARTERIAL HYPERTENSION
     Dosage: UNK
     Route: 048
  7. TREPROSTINIL. [Suspect]
     Active Substance: TREPROSTINIL
     Dosage: 0.125 MILLIGRAM, TID
     Route: 048
  8. TREPROSTINIL. [Suspect]
     Active Substance: TREPROSTINIL
     Dosage: 0.25 MILLIGRAM, TID
     Route: 048
  9. AMBRISENTAN [Concomitant]
     Active Substance: AMBRISENTAN
     Indication: PRODUCT USED FOR UNKNOWN INDICATION
     Dosage: UNK
     Route: 065

REACTIONS (17)
  - Pruritus [Unknown]
  - Gastrooesophageal reflux disease [Unknown]
  - Fatigue [Unknown]
  - Joint swelling [Unknown]
  - Oedema peripheral [Unknown]
  - Erythema [Unknown]
  - Flushing [Recovered/Resolved]
  - Peripheral swelling [Recovered/Resolved]
  - General physical health deterioration [Unknown]
  - Headache [Unknown]
  - Nausea [Unknown]
  - Dyspnoea [Unknown]
  - Haemoptysis [Unknown]
  - Vomiting [Unknown]
  - Pain [Unknown]
  - Epistaxis [Unknown]
  - Back pain [Recovered/Resolved]

NARRATIVE: CASE EVENT DATE: 202010
